FAERS Safety Report 4417969-1 (Version None)
Quarter: 2004Q2

REPORT INFORMATION
  Report Type: 
  Country: None (occurrence: None)
  Receive Date: 20040622
  Receipt Date: 20031124
  Transmission Date: 20050107
  Serious: Yes (Hospitalization)
  Sender: FDA-Public Use
  Company Number: 352522

PATIENT
  Age: 61 Year
  Sex: Male
  Weight: 88.9 kg

DRUGS (3)
  1. XELODA [Suspect]
     Indication: GASTRIC CANCER
     Dosage: 10000 MG 2 PER DAY ORAL
     Route: 048
     Dates: start: 20030924, end: 20031103
  2. TAXOTERE [Concomitant]
  3. CABOPLATIN (CARBOPLATIN) [Concomitant]

REACTIONS (2)
  - DISEASE PROGRESSION [None]
  - GASTRIC OUTLET OBSTRUCTION [None]
